FAERS Safety Report 20680504 (Version 1)
Quarter: 2022Q2

REPORT INFORMATION
  Report Type: Spontaneous
  Country: US (occurrence: None)
  Receive Date: 20220405
  Receipt Date: 20220405
  Transmission Date: 20220720
  Serious: Yes (Life-Threatening, Hospitalization)
  Sender: FDA-Public Use
  Company Number: None

PATIENT
  Age: 71 Year
  Sex: Male

DRUGS (1)
  1. MIDAZOLAM HYDROCHLORIDE [Suspect]
     Active Substance: MIDAZOLAM HYDROCHLORIDE
     Indication: Surgery
     Dates: start: 20220202, end: 20220202

REACTIONS (18)
  - Bradycardia [None]
  - Pulse absent [None]
  - Troponin increased [None]
  - Ventricular extrasystoles [None]
  - Heart valve incompetence [None]
  - Pulmonary valve incompetence [None]
  - Aortic valve incompetence [None]
  - End-tidal CO2 increased [None]
  - Pulmonary arterial pressure increased [None]
  - Bronchospasm [None]
  - Anaphylactic reaction [None]
  - Drug hypersensitivity [None]
  - Asthma [None]
  - Endotracheal intubation complication [None]
  - Presyncope [None]
  - Cardiogenic shock [None]
  - Overdose [None]
  - Blood immunoglobulin E increased [None]

NARRATIVE: CASE EVENT DATE: 20220207
